FAERS Safety Report 4430634-X (Version None)
Quarter: 2004Q3

REPORT INFORMATION
  Report Type: 
  Country: None (occurrence: None)
  Receive Date: 20040818
  Receipt Date: 20040803
  Transmission Date: 20050211
  Serious: Yes (Hospitalization)
  Sender: FDA-Public Use
  Company Number: 04P-087-0269008-00

PATIENT
  Age: 47 Year
  Sex: Male

DRUGS (20)
  1. AKINETON [Suspect]
     Dosage: 3 MG 1 IN 1 D
     Dates: start: 20040503, end: 20040617
  2. PHENYTOIN [Suspect]
     Dosage: SEE IMAGE
     Dates: start: 20040426, end: 20040427
  3. PHENYTOIN [Suspect]
     Dosage: SEE IMAGE
     Dates: start: 20040428, end: 20040625
  4. HALOPERIDOL [Suspect]
     Dosage: SEE IMAGE
     Dates: start: 20040426, end: 20040502
  5. HALOPERIDOL [Suspect]
     Dosage: SEE IMAGE
     Dates: start: 20040503, end: 20040512
  6. HALOPERIDOL [Suspect]
     Dosage: SEE IMAGE
     Dates: start: 20040513, end: 20040613
  7. HALOPERIDOL [Suspect]
     Dosage: SEE IMAGE
     Dates: start: 20040614, end: 20040617
  8. LEVOMEPROMAZINE [Suspect]
     Indication: ENCEPHALITIS HERPES
     Dosage: SEE IMAGE
     Route: 048
     Dates: start: 20040428, end: 20040429
  9. LEVOMEPROMAZINE [Suspect]
     Indication: ENCEPHALITIS HERPES
     Dosage: SEE IMAGE
     Route: 048
     Dates: start: 20040430, end: 20040506
  10. LEVOMEPROMAZINE [Suspect]
     Indication: ENCEPHALITIS HERPES
     Dosage: SEE IMAGE
     Route: 048
     Dates: start: 20040507, end: 20040512
  11. LEVOMEPROMAZINE [Suspect]
     Indication: ENCEPHALITIS HERPES
     Dosage: SEE IMAGE
     Route: 048
     Dates: start: 20040513, end: 20040625
  12. CARBAMAZEPINE [Suspect]
     Indication: ENCEPHALITIS HERPES
     Dosage: SEE IMAGE
     Route: 048
     Dates: start: 20040501, end: 20040526
  13. CARBAMAZEPINE [Suspect]
     Indication: ENCEPHALITIS HERPES
     Dosage: SEE IMAGE
     Route: 048
     Dates: start: 20040527, end: 20040614
  14. FAMOTIDINE [Suspect]
     Indication: ENCEPHALITIS HERPES
     Dosage: 40 MG, ORAL
     Route: 047
     Dates: start: 20040513, end: 20040616
  15. QUETIAPINE [Suspect]
     Indication: ENCEPHALITIS HERPES
     Dosage: SEE IMAGE
     Route: 048
     Dates: start: 20040517, end: 20040519
  16. QUETIAPINE [Suspect]
     Indication: ENCEPHALITIS HERPES
     Dosage: SEE IMAGE
     Route: 048
     Dates: start: 20040520, end: 20040617
  17. VIDARABINE [Suspect]
     Indication: ENCEPHALITIS HERPES
     Dosage: 600 MG, INTRAVENOUS
     Route: 042
     Dates: start: 20040521, end: 20040530
  18. GADOTERIDOL [Suspect]
     Indication: NUCLEAR MAGNETIC RESONANCE IMAGING
     Dosage: INTRAVENOUS
     Route: 042
     Dates: start: 20040525, end: 20040525
  19. PL GRAN. [Suspect]
     Dosage: 3 GM, ORAL
     Route: 048
     Dates: start: 20040612, end: 20040614
  20. TEPRENONE [Suspect]
     Dosage: ORAL
     Route: 048

REACTIONS (6)
  - CONTRAST MEDIA REACTION [None]
  - DRUG ERUPTION [None]
  - HEPATIC ENZYME INCREASED [None]
  - HEPATIC FUNCTION ABNORMAL [None]
  - INFLUENZA LIKE ILLNESS [None]
  - SCAB [None]
